FAERS Safety Report 15500021 (Version 1)
Quarter: 2018Q4

REPORT INFORMATION
  Report Type: Report from Study
  Country: BR (occurrence: BR)
  Receive Date: 20181015
  Receipt Date: 20181015
  Transmission Date: 20190205
  Serious: Yes (Hospitalization, Other)
  Sender: FDA-Public Use
  Company Number: PHHY2018BR121995

PATIENT
  Age: 38 Year
  Sex: Male

DRUGS (5)
  1. AZARGA [Suspect]
     Active Substance: BRINZOLAMIDE\TIMOLOL MALEATE
     Indication: GLAUCOMA
     Dosage: 1 GTT, Q12H, IN EACH EYE
     Route: 047
     Dates: start: 2008, end: 20180817
  2. SIMBRINZA [Suspect]
     Active Substance: BRIMONIDINE TARTRATE\BRINZOLAMIDE
     Indication: GLAUCOMA
     Route: 047
     Dates: start: 20180817
  3. LACRIFILM [Suspect]
     Active Substance: CARBOXYMETHYLCELLULOSE SODIUM
     Indication: DRY EYE
  4. AEROLIN [Suspect]
     Active Substance: ALBUTEROL
     Indication: BRADYCARDIA
     Dosage: 2 MG, QD
     Route: 048
     Dates: start: 20180808
  5. LACRIFILM [Suspect]
     Active Substance: CARBOXYMETHYLCELLULOSE SODIUM
     Indication: EYE INJURY
     Dosage: 1 GTT, QID, EACH EYE
     Route: 047
     Dates: start: 20180817

REACTIONS (14)
  - Shock [Recovering/Resolving]
  - Sinus bradycardia [Not Recovered/Not Resolved]
  - Dry eye [Recovering/Resolving]
  - Renal neoplasm [Unknown]
  - Weight decreased [Unknown]
  - Back pain [Not Recovered/Not Resolved]
  - Pain [Unknown]
  - Disturbance in attention [Unknown]
  - Hypoaesthesia [Recovering/Resolving]
  - Heart rate increased [Recovering/Resolving]
  - Eye injury [Recovering/Resolving]
  - Renal failure [Unknown]
  - Malaise [Unknown]
  - Neoplasm [Recovering/Resolving]

NARRATIVE: CASE EVENT DATE: 20160610
